FAERS Safety Report 25417381 (Version 1)
Quarter: 2025Q2

REPORT INFORMATION
  Report Type: Spontaneous
  Country: US (occurrence: None)
  Receive Date: 20250608
  Receipt Date: 20250608
  Transmission Date: 20250716
  Serious: Yes (Other)
  Sender: FDA-CTU
  Company Number: None

PATIENT
  Age: 58 Year
  Sex: Female
  Weight: 63 kg

DRUGS (1)
  1. PROZAC [Suspect]
     Active Substance: FLUOXETINE HYDROCHLORIDE
     Indication: Depression
     Dates: start: 20130101

REACTIONS (9)
  - Inappropriate schedule of product discontinuation [None]
  - Withdrawal syndrome [None]
  - Insomnia [None]
  - Akathisia [None]
  - Decreased appetite [None]
  - Anxiety [None]
  - Suicidal ideation [None]
  - Dizziness [None]
  - Sensory disturbance [None]

NARRATIVE: CASE EVENT DATE: 20250130
